FAERS Safety Report 6021049-1 (Version None)
Quarter: 2008Q4

REPORT INFORMATION
  Report Type: 
  Country: None (occurrence: None)
  Receive Date: 20081229
  Receipt Date: 20081218
  Transmission Date: 20090506
  Serious: Yes (Hospitalization, Other)
  Sender: FDA-Public Use
  Company Number: US-BIOGENIDEC-2008BI034585

PATIENT
  Age: 56 Year
  Sex: Female

DRUGS (1)
  1. AVONEX [Suspect]
     Indication: MULTIPLE SCLEROSIS
     Route: 030
     Dates: start: 20060707

REACTIONS (6)
  - ABDOMINAL DISCOMFORT [None]
  - ARTHRITIS [None]
  - ASTHENIA [None]
  - BONE NEOPLASM MALIGNANT [None]
  - BREAST LUMP REMOVAL [None]
  - VOMITING [None]
